FAERS Safety Report 12529039 (Version 2)
Quarter: 2016Q3

REPORT INFORMATION
  Report Type: Report from Study
  Country: MX (occurrence: MX)
  Receive Date: 20160705
  Receipt Date: 20160727
  Transmission Date: 20161109
  Serious: Yes (Hospitalization)
  Sender: FDA-Public Use
  Company Number: MX-BAYER-2016-126230

PATIENT
  Age: 42 Year
  Sex: Female
  Weight: 64 kg

DRUGS (6)
  1. BETAFERON [Suspect]
     Active Substance: INTERFERON BETA-1B
     Indication: MULTIPLE SCLEROSIS
     Dosage: 1 DF, QOD
     Dates: start: 20140506, end: 20160615
  2. BEZAFIBRATE [Concomitant]
     Active Substance: BEZAFIBRATE
  3. NIFEDIPINE. [Concomitant]
     Active Substance: NIFEDIPINE
  4. LOSARTAN. [Concomitant]
     Active Substance: LOSARTAN
  5. ISOSORBIDE [ISOSORBIDE MONONITRATE] [Concomitant]
  6. METOPROLOL. [Concomitant]
     Active Substance: METOPROLOL

REACTIONS (7)
  - General physical health deterioration [Not Recovered/Not Resolved]
  - Headache [Not Recovered/Not Resolved]
  - Abasia [Not Recovered/Not Resolved]
  - Urticaria [Not Recovered/Not Resolved]
  - Muscular weakness [Not Recovered/Not Resolved]
  - Injection site pain [None]
  - Pain [Not Recovered/Not Resolved]

NARRATIVE: CASE EVENT DATE: 20160615
